FAERS Safety Report 18631856 (Version 1)
Quarter: 2020Q4

REPORT INFORMATION
  Report Type: Report from Study
  Country: US (occurrence: US)
  Receive Date: 20201218
  Receipt Date: 20201218
  Transmission Date: 20210114
  Serious: No
  Sender: FDA-Public Use
  Company Number: US-ACADIA PHARMACEUTICALS INC.-ACA-2020-PIM-003816

PATIENT
  Sex: Male
  Weight: 101 kg

DRUGS (1)
  1. NUPLAZID [Suspect]
     Active Substance: PIMAVANSERIN TARTRATE
     Indication: PARKINSON^S DISEASE
     Dosage: 34 MILLIGRAM, BID
     Route: 048
     Dates: start: 202007

REACTIONS (3)
  - Inappropriate schedule of product administration [Unknown]
  - Adverse drug reaction [Unknown]
  - Overdose [Unknown]
